FAERS Safety Report 11680913 (Version 3)
Quarter: 2015Q4

REPORT INFORMATION
  Report Type: Spontaneous
  Country: US (occurrence: US)
  Receive Date: 20151027
  Receipt Date: 20151110
  Transmission Date: 20160304
  Serious: No
  Sender: FDA-Public Use
  Company Number: US-ELI_LILLY_AND_COMPANY-US201011002947

PATIENT
  Sex: Female

DRUGS (6)
  1. FORTEO [Suspect]
     Active Substance: TERIPARATIDE
     Dosage: 20 UG, QD
  2. FORTEO [Suspect]
     Active Substance: TERIPARATIDE
     Indication: OSTEOPOROSIS
     Dosage: 20 UG, DAILY (1/D)
     Route: 065
     Dates: start: 20101013
  3. FORTEO [Suspect]
     Active Substance: TERIPARATIDE
     Dosage: 20 UG, DAILY (1/D)
     Route: 065
  4. FORTEO [Suspect]
     Active Substance: TERIPARATIDE
     Dosage: 20 UG, QD
  5. FORTEO [Suspect]
     Active Substance: TERIPARATIDE
     Dosage: 20 UG, DAILY (1/D)
     Route: 065
  6. COZAAR [Concomitant]
     Active Substance: LOSARTAN POTASSIUM
     Indication: HEART VALVE INCOMPETENCE
     Dosage: 100 MG, DAILY (1/D)

REACTIONS (18)
  - Rhinorrhoea [Unknown]
  - Bronchitis [Unknown]
  - Nocturia [Unknown]
  - Rash [Unknown]
  - Cough [Unknown]
  - Infection [Unknown]
  - Malaise [Unknown]
  - Muscle spasms [Unknown]
  - Blood pressure increased [Not Recovered/Not Resolved]
  - Contusion [Unknown]
  - Drug dose omission [Unknown]
  - Lacrimation increased [Unknown]
  - Nausea [Unknown]
  - Throat irritation [Recovering/Resolving]
  - Blood calcium abnormal [Unknown]
  - Vertigo [Unknown]
  - Oropharyngeal pain [Recovering/Resolving]
  - Sneezing [Unknown]
